FAERS Safety Report 19112159 (Version 1)
Quarter: 2021Q2

REPORT INFORMATION
  Report Type: Spontaneous
  Country: US (occurrence: US)
  Receive Date: 20210409
  Receipt Date: 20210409
  Transmission Date: 20210717
  Serious: Yes (Other)
  Sender: FDA-Public Use
  Company Number: US-GLAXOSMITHKLINE-US2021GSK078452

PATIENT
  Sex: Female

DRUGS (6)
  1. RANITIDINE. [Suspect]
     Active Substance: RANITIDINE
     Indication: GASTROINTESTINAL HAEMORRHAGE
     Dosage: 75 MG, QD
     Route: 065
     Dates: start: 201809, end: 202005
  2. ZANTAC [Suspect]
     Active Substance: RANITIDINE HYDROCHLORIDE
     Indication: GASTROINTESTINAL HAEMORRHAGE
     Dosage: 150 MG, QD
     Route: 065
     Dates: start: 201103, end: 201901
  3. RANITIDINE CAPSULE [Suspect]
     Active Substance: RANITIDINE
     Indication: GASTROINTESTINAL HAEMORRHAGE
     Dosage: 75 MG, QD
     Route: 065
     Dates: start: 201809, end: 202005
  4. ZANTAC [Suspect]
     Active Substance: RANITIDINE HYDROCHLORIDE
     Indication: GASTROINTESTINAL HAEMORRHAGE
     Dosage: 150 MG, QD
     Route: 065
     Dates: start: 201103, end: 201901
  5. RANITIDINE. [Suspect]
     Active Substance: RANITIDINE
     Indication: GASTROINTESTINAL HAEMORRHAGE
     Dosage: 75 MG, QD
     Route: 065
     Dates: start: 201809, end: 202005
  6. RANITIDINE. [Suspect]
     Active Substance: RANITIDINE
     Indication: GASTROINTESTINAL HAEMORRHAGE
     Dosage: 75 MG, QD
     Route: 065
     Dates: start: 201809, end: 202005

REACTIONS (1)
  - Haematological malignancy [Unknown]
